FAERS Safety Report 5106969-4 (Version None)
Quarter: 2006Q3

REPORT INFORMATION
  Report Type: 
  Country: None (occurrence: None)
  Receive Date: 20060913
  Receipt Date: 20060829
  Transmission Date: 20061208
  Serious: Yes (Hospitalization)
  Sender: FDA-Public Use
  Company Number: US-2006-022385

PATIENT
  Age: 55 Year
  Sex: Male
  Weight: 86.2 kg

DRUGS (3)
  1. BETASERON [Suspect]
     Indication: SECONDARY PROGRESSIVE MULTIPLE SCLEROSIS
     Dosage: 9.6 MIU, EVERY 2D, SUBCUTANEOUS
     Route: 058
     Dates: start: 19950208
  2. TOPROL-XL [Concomitant]
  3. LIPITOR [Concomitant]

REACTIONS (4)
  - ABASIA [None]
  - ASTHENIA [None]
  - IMPAIRED DRIVING ABILITY [None]
  - INJECTION SITE CELLULITIS [None]
